FAERS Safety Report 8860970 (Version 2)
Quarter: 2012Q4

REPORT INFORMATION
  Report Type: 
  Country: US (occurrence: US)
  Receive Date: 20121025
  Receipt Date: 20121104
  Transmission Date: 20130627
  Serious: No
  Sender: FDA-Public Use
  Company Number: US-ROXANE LABORATORIES, INC.-2012-RO-02011RO

PATIENT
  Sex: Male

DRUGS (3)
  1. MERCAPTOPURINE [Suspect]
     Indication: COLITIS
     Dosage: 100 mg
     Route: 048
  2. ATORVASTATIN [Concomitant]
  3. METOPROLOL [Concomitant]
     Dosage: 25 mg

REACTIONS (2)
  - Drug ineffective [Recovered/Resolved]
  - Product quality issue [Unknown]
